FAERS Safety Report 8166920-X (Version None)
Quarter: 2012Q1

REPORT INFORMATION
  Report Type: 
  Country: None (occurrence: None)
  Receive Date: 20120227
  Receipt Date: 20120220
  Transmission Date: 20120608
  Serious: Yes (Hospitalization)
  Sender: FDA-Public Use
  Company Number: UA-UCBSA-052053

PATIENT
  Age: 9 Year
  Sex: Female

DRUGS (1)
  1. KEPPRA [Suspect]
     Indication: EPILEPSY
     Route: 048
     Dates: start: 20111201, end: 20120201

REACTIONS (2)
  - CONVULSION [None]
  - CLONUS [None]
